FAERS Safety Report 24341719 (Version 1)
Quarter: 2024Q3

REPORT INFORMATION
  Report Type: Spontaneous
  Country: US (occurrence: US)
  Receive Date: 20240920
  Receipt Date: 20240920
  Transmission Date: 20241017
  Serious: Yes (Hospitalization)
  Sender: PACIRA
  Company Number: US-ORG100016242-2024000581

PATIENT
  Age: 44 Year
  Sex: Female

DRUGS (2)
  1. EXPAREL [Suspect]
     Active Substance: BUPIVACAINE
     Indication: Gastric bypass
     Dosage: 20 ML FOR GASTRIC BYPASS SLEEVE
     Route: 050
     Dates: start: 20240911, end: 20240911
  2. EXPAREL [Suspect]
     Active Substance: BUPIVACAINE
     Indication: Gastric bypass
     Dosage: 20 ML FOR POST-SURGICAL INCISIONAL HERNIA REPAIR
     Route: 050
     Dates: start: 20240912, end: 20240912

REACTIONS (3)
  - Inappropriate schedule of product administration [Unknown]
  - Chest discomfort [Unknown]
  - Anxiety [Unknown]

NARRATIVE: CASE EVENT DATE: 20240912
